FAERS Safety Report 9188446 (Version 1)
Quarter: 2012Q4

REPORT INFORMATION
  Report Type: 
  Country: US (occurrence: US)
  Receive Date: 20121205
  Receipt Date: 20121205
  Transmission Date: 20130627
  Serious: Yes (Other)
  Sender: FDA-Public Use
  Company Number: PHEH2012US023588

PATIENT
  Sex: Female

DRUGS (6)
  1. LETROZOLE [Suspect]
     Indication: BREAST CANCER
     Dosage: 2.5 mg, once a day
     Route: 048
  2. AMELOR [Concomitant]
  3. MORPHINE SULFATE [Concomitant]
  4. FISH OIL [Concomitant]
  5. CHLORTHALIDONE [Concomitant]
  6. PRILOSEC [Concomitant]

REACTIONS (6)
  - Pain [Unknown]
  - Arthritis [Unknown]
  - Bone pain [Unknown]
  - Feeling abnormal [Unknown]
  - Fluid retention [Unknown]
  - Swelling [Unknown]
